FAERS Safety Report 8988958 (Version 3)
Quarter: 2015Q1

REPORT INFORMATION
  Report Type: Report from Study
  Country: MX (occurrence: MX)
  Receive Date: 20121228
  Receipt Date: 20150310
  Transmission Date: 20150721
  Serious: Yes (Death, Hospitalization, Other)
  Sender: FDA-Public Use
  Company Number: PHHY2012MX120189

PATIENT
  Age: 88 Year
  Sex: Male

DRUGS (8)
  1. PRIMIER [Concomitant]
     Indication: GASTROINTESTINAL DISORDER
     Dosage: 1 OT, QD
     Route: 065
     Dates: start: 201307
  2. EXELON PATCH [Suspect]
     Active Substance: RIVASTIGMINE
     Indication: MEMORY IMPAIRMENT
     Dosage: 4.6 MG (ONE PATCH), QD
     Route: 062
     Dates: start: 20121224, end: 201308
  3. GENTEAL                            /03186201/ [Concomitant]
     Indication: PRODUCT USED FOR UNKNOWN INDICATION
     Dosage: 1 DF, UNK
     Route: 065
     Dates: start: 201103
  4. EXELON PATCH [Suspect]
     Active Substance: RIVASTIGMINE
     Indication: PROPHYLAXIS
     Dosage: 9.5 MG (ONE PATCH), QD
     Route: 062
     Dates: start: 201308
  5. EXFORGE [Suspect]
     Active Substance: AMLODIPINE BESYLATE\VALSARTAN
     Indication: HYPERTENSION
     Dosage: 1 DF, QD
     Route: 065
  6. CASODEX [Concomitant]
     Active Substance: BICALUTAMIDE
     Indication: PROSTATIC DISORDER
     Route: 065
  7. EXFORGE [Suspect]
     Active Substance: AMLODIPINE BESYLATE\VALSARTAN
     Indication: BLOOD CHOLESTEROL ABNORMAL
  8. AKATINOL MEMANTINA [Concomitant]
     Indication: NERVOUS SYSTEM DISORDER
     Dosage: 20 MG, QD
     Route: 065
     Dates: start: 2011

REACTIONS (24)
  - Cardiac arrest [Fatal]
  - Sepsis [Recovered/Resolved]
  - Muscular weakness [Recovering/Resolving]
  - Blood sodium decreased [Recovering/Resolving]
  - Poor peripheral circulation [Unknown]
  - Bronchitis [Unknown]
  - Cardiac disorder [Not Recovered/Not Resolved]
  - Blood cholesterol increased [Recovering/Resolving]
  - Fatigue [Unknown]
  - Gangrene [Unknown]
  - Fall [Recovering/Resolving]
  - Cardiac failure [Unknown]
  - Cerebral arteriosclerosis [Not Recovered/Not Resolved]
  - Cough [Unknown]
  - Movement disorder [Unknown]
  - Lung disorder [Unknown]
  - Food aversion [Unknown]
  - Abasia [Unknown]
  - Lung infection [Unknown]
  - Dyspnoea [Unknown]
  - Depressed mood [Unknown]
  - Tremor [Recovering/Resolving]
  - Osmotic demyelination syndrome [Recovering/Resolving]
  - Arterial occlusive disease [Recovering/Resolving]

NARRATIVE: CASE EVENT DATE: 20141218
